FAERS Safety Report 5020334-X (Version None)
Quarter: 2006Q2

REPORT INFORMATION
  Report Type: 
  Country: None (occurrence: None)
  Receive Date: 20060606
  Receipt Date: 20060523
  Transmission Date: 20061013
  Serious: Yes (Hospitalization)
  Sender: FDA-Public Use
  Company Number: 152047

PATIENT
  Age: 55 Year
  Sex: Male

DRUGS (1)
  1. AVONEX [Suspect]
     Indication: MULTIPLE SCLEROSIS
     Dosage: 30 UG QW IM ; IM
     Route: 030
     Dates: start: 20000915, end: 20010704

REACTIONS (2)
  - BASILAR ARTERY OCCLUSION [None]
  - CEREBROVASCULAR ACCIDENT [None]
